FAERS Safety Report 10951274 (Version 1)
Quarter: 2015Q1

REPORT INFORMATION
  Report Type: Spontaneous
  Country: US (occurrence: None)
  Receive Date: 20150226
  Receipt Date: 20150226
  Transmission Date: 20150721
  Serious: Yes (Other)
  Sender: FDA-Public Use
  Company Number: PHEH2014US010732

PATIENT
  Sex: Male

DRUGS (2)
  1. DILANTIN [Suspect]
     Active Substance: PHENYTOIN
  2. TEGRETOL [Suspect]
     Active Substance: CARBAMAZEPINE

REACTIONS (2)
  - Drug level increased [None]
  - Hallucination [None]
